FAERS Safety Report 16745821 (Version 2)
Quarter: 2019Q4

REPORT INFORMATION
  Report Type: Spontaneous
  Country: US (occurrence: US)
  Receive Date: 20190827
  Receipt Date: 20191203
  Transmission Date: 20200122
  Serious: No
  Sender: FDA-Public Use
  Company Number: US-SA-2019SA025868

PATIENT
  Age: 24 Year
  Sex: Male

DRUGS (8)
  1. KETOCONAZOLE. [Concomitant]
     Active Substance: KETOCONAZOLE
  2. FLUCONAZOLE. [Concomitant]
     Active Substance: FLUCONAZOLE
  3. TIZANIDINE. [Concomitant]
     Active Substance: TIZANIDINE
  4. MOMETASONE [Concomitant]
     Active Substance: MOMETASONE
  5. NAPROXEN. [Concomitant]
     Active Substance: NAPROXEN
  6. DUPIXENT [Suspect]
     Active Substance: DUPILUMAB
     Indication: DERMATITIS ATOPIC
     Dosage: 300 MG, QOW
     Route: 058
     Dates: start: 20190124
  7. TACROLIMUS. [Concomitant]
     Active Substance: TACROLIMUS
  8. AZITHROMYCIN ANHYDROUS. [Concomitant]
     Active Substance: AZITHROMYCIN ANHYDROUS

REACTIONS (3)
  - Skin discomfort [Not Recovered/Not Resolved]
  - Fungal skin infection [Recovered/Resolved]
  - Dermatitis atopic [Not Recovered/Not Resolved]

NARRATIVE: CASE EVENT DATE: 2019
